FAERS Safety Report 15773106 (Version 1)
Quarter: 2018Q4

REPORT INFORMATION
  Report Type: Spontaneous
  Country: US (occurrence: US)
  Receive Date: 20181228
  Receipt Date: 20181228
  Transmission Date: 20190205
  Serious: No
  Sender: FDA-Public Use
  Company Number: US-SA-2018SA395738

PATIENT
  Sex: Female

DRUGS (9)
  1. GINKGO BILOBA [GINKGO BILOBA LEAF] [Concomitant]
  2. LORATADINE. [Concomitant]
     Active Substance: LORATADINE
  3. TOVIAZ [Concomitant]
     Active Substance: FESOTERODINE FUMARATE
  4. AUBAGIO [Suspect]
     Active Substance: TERIFLUNOMIDE
     Indication: MULTIPLE SCLEROSIS
     Dosage: 1 DF, QD
     Route: 048
     Dates: start: 20180921
  5. DHEA [Concomitant]
     Active Substance: PRASTERONE
  6. LISINOPRIL. [Concomitant]
     Active Substance: LISINOPRIL
  7. MODAFINIL. [Concomitant]
     Active Substance: MODAFINIL
  8. COQ10 [UBIDECARENONE] [Concomitant]
  9. VITAMIN D3 [Concomitant]
     Active Substance: CHOLECALCIFEROL

REACTIONS (1)
  - Diarrhoea [Unknown]
